FAERS Safety Report 9097222 (Version 1)
Quarter: 2013Q1

REPORT INFORMATION
  Report Type: Spontaneous
  Country: DE (occurrence: DE)
  Receive Date: 20130212
  Receipt Date: 20130212
  Transmission Date: 20140127
  Serious: Yes (Other)
  Sender: FDA-Public Use
  Company Number: DE-PFIZER INC-2013053800

PATIENT
  Sex: 0

DRUGS (1)
  1. SORTIS [Suspect]
     Dosage: UNK

REACTIONS (2)
  - Dementia [Unknown]
  - Dysphagia [Unknown]
